FAERS Safety Report 20002091 (Version 2)
Quarter: 2022Q1

REPORT INFORMATION
  Report Type: Spontaneous
  Country: JP (occurrence: JP)
  Receive Date: 20211027
  Receipt Date: 20220207
  Transmission Date: 20220423
  Serious: Yes (Other)
  Sender: FDA-Public Use
  Company Number: JP-EAGLE PHARMACEUTICALS, INC.-JP-2021EAG000226

PATIENT
  Age: 78 Year
  Sex: Male

DRUGS (12)
  1. BENDAMUSTINE HYDROCHLORIDE [Suspect]
     Active Substance: BENDAMUSTINE HYDROCHLORIDE
     Indication: Enteropathy-associated T-cell lymphoma
     Dosage: UNK (CYCLE 1 BR THERAPY)
     Route: 041
  2. BENDAMUSTINE HYDROCHLORIDE [Suspect]
     Active Substance: BENDAMUSTINE HYDROCHLORIDE
     Dosage: UNK (CYCLE 2 BR THERAPY)
     Route: 041
  3. BENDAMUSTINE HYDROCHLORIDE [Suspect]
     Active Substance: BENDAMUSTINE HYDROCHLORIDE
     Dosage: UNK (CYCLE 3 BR THERAPY)
     Route: 041
  4. BENDAMUSTINE HYDROCHLORIDE [Suspect]
     Active Substance: BENDAMUSTINE HYDROCHLORIDE
     Dosage: UNK (CYCLE 4 BR THERAPY)
     Route: 041
  5. BENDAMUSTINE HYDROCHLORIDE [Suspect]
     Active Substance: BENDAMUSTINE HYDROCHLORIDE
     Dosage: UNK (CYCLE 5 BR THERAPY)
     Route: 041
  6. BENDAMUSTINE HYDROCHLORIDE [Suspect]
     Active Substance: BENDAMUSTINE HYDROCHLORIDE
     Dosage: UNK (CYCLE 6 BR THERAPY)
     Route: 041
  7. RITUXAN [Concomitant]
     Active Substance: RITUXIMAB
     Indication: Enteropathy-associated T-cell lymphoma
     Dosage: UNK (CYCLE 1 BR THERAPY)
     Route: 041
  8. RITUXAN [Concomitant]
     Active Substance: RITUXIMAB
     Dosage: UNK (CYCLE 2 BR THERAPY)
     Route: 041
  9. RITUXAN [Concomitant]
     Active Substance: RITUXIMAB
     Dosage: UNK (CYCLE 3 BR THERAPY)
     Route: 041
  10. RITUXAN [Concomitant]
     Active Substance: RITUXIMAB
     Dosage: UNK (CYCLE 4 BR THERAPY)
     Route: 041
  11. RITUXAN [Concomitant]
     Active Substance: RITUXIMAB
     Dosage: UNK (CYCLE 5 BR THERAPY)
     Route: 041
  12. RITUXAN [Concomitant]
     Active Substance: RITUXIMAB
     Dosage: UNK (CYCLE 6 BR THERAPY)
     Route: 041

REACTIONS (1)
  - Enteropathy-associated T-cell lymphoma [Recovered/Resolved]
